FAERS Safety Report 4489523-7 (Version None)
Quarter: 2004Q4

REPORT INFORMATION
  Report Type: 
  Country: None (occurrence: None)
  Receive Date: 20041026
  Receipt Date: 20041019
  Transmission Date: 20050328
  Serious: Yes (Death, Life-Threatening, Hospitalization, Other)
  Sender: FDA-Public Use
  Company Number: 2004239695EC

PATIENT
  Age: 27 Year
  Sex: Male
  Weight: 55 kg

DRUGS (8)
  1. CYTOSAR-U [Suspect]
     Indication: ACUTE MYELOID LEUKAEMIA
     Dosage: 200 MG, QD, IV
     Route: 042
     Dates: start: 20040915, end: 20040917
  2. DOXORUBICIN HCL [Suspect]
     Indication: ACUTE MYELOID LEUKAEMIA
     Dosage: 50 MG, QD, IV
     Route: 042
     Dates: start: 20040915, end: 20040917
  3. POSACONAZOLE [Suspect]
     Indication: ANTIFUNGAL PROPHYLAXIS
  4. ALLOPURIONOL [Concomitant]
  5. AUGMENTIN '125' [Concomitant]
  6. CEFTAZIDIME (CEFTAZIDIEM) [Concomitant]
  7. AMIKACIN [Concomitant]
  8. METRONIDAZOLE [Concomitant]

REACTIONS (13)
  - ACUTE PULMONARY OEDEMA [None]
  - ALKALOSIS [None]
  - BRAIN DAMAGE [None]
  - CEREBRAL HAEMORRHAGE [None]
  - DISSEMINATED INTRAVASCULAR COAGULATION [None]
  - GASTROINTESTINAL HAEMORRHAGE [None]
  - HAEMATURIA [None]
  - INTRAVENTRICULAR HAEMORRHAGE [None]
  - LUNG NEOPLASM [None]
  - MYDRIASIS [None]
  - PYREXIA [None]
  - RESPIRATORY TRACT HAEMORRHAGE [None]
  - THROMBOSIS [None]
